FAERS Safety Report 6690132-X (Version None)
Quarter: 2010Q2

REPORT INFORMATION
  Report Type: 
  Country: None (occurrence: None)
  Receive Date: 20100421
  Receipt Date: 20100414
  Transmission Date: 20101027
  Serious: No
  Sender: FDA-Public Use
  Company Number: CA-JNJFOC-20100404648

PATIENT

DRUGS (7)
  1. GOLIMUMAB [Suspect]
     Indication: PSORIATIC ARTHROPATHY
     Route: 058
  2. GOLIMUMAB [Suspect]
     Route: 058
  3. PLACEBO [Suspect]
     Indication: PSORIATIC ARTHROPATHY
     Route: 058
  4. ALESSE [Concomitant]
     Route: 048
  5. DICLOFENAC [Concomitant]
     Route: 048
  6. DIPROSALIC LOTION [Concomitant]
     Route: 061
  7. FERROUS SULFATE TAB [Concomitant]
     Route: 048

REACTIONS (1)
  - BASAL CELL CARCINOMA [None]
